FAERS Safety Report 4592719-7 (Version None)
Quarter: 2005Q1

REPORT INFORMATION
  Report Type: 
  Country: None (occurrence: None)
  Receive Date: 20050228
  Receipt Date: 20050218
  Transmission Date: 20050727
  Serious: Yes (Other)
  Sender: FDA-Public Use
  Company Number: PHEH2005US02252

PATIENT
  Sex: Male

DRUGS (2)
  1. ZOMETA [Suspect]
     Indication: MULTIPLE MYELOMA
     Dosage: 4 MG Q 4 WEEKS
     Route: 042
  2. DEXAMETHASONE [Concomitant]
     Dosage: Q PROTOCOL

REACTIONS (2)
  - BONE MARROW TRANSPLANT [None]
  - OSTEONECROSIS [None]
